FAERS Safety Report 8777332 (Version 1)
Quarter: 2012Q4

REPORT INFORMATION
  Report Type: 
  Country: SE (occurrence: SE)
  Receive Date: 20120911
  Receipt Date: 20120911
  Transmission Date: 20130627
  Serious: Yes (Hospitalization, Other)
  Sender: FDA-Public Use
  Company Number: SE-PFIZER INC-2012219721

PATIENT
  Age: 79 Year
  Sex: Male

DRUGS (15)
  1. DOLCONTIN [Suspect]
     Dosage: UNK
     Route: 048
     Dates: start: 20120705, end: 20120712
  2. BISOPROLOL [Concomitant]
     Dosage: UNK
  3. CIPRALEX [Concomitant]
     Dosage: UNK
  4. ALFUZOSIN [Concomitant]
     Dosage: UNK
  5. ENALAPRIL [Concomitant]
     Dosage: UNK
  6. SIMVASTATIN [Concomitant]
     Dosage: UNK
  7. NITROLINGUAL [Concomitant]
     Dosage: UNK
  8. NITROMEX [Concomitant]
     Dosage: UNK
  9. FOLACIN [Concomitant]
     Dosage: UNK
  10. ALVEDON [Concomitant]
     Dosage: UNK
  11. BEHEPAN [Concomitant]
     Dosage: UNK
  12. MINDIAB [Concomitant]
     Dosage: UNK
  13. FURIX [Concomitant]
     Dosage: UNK
  14. OXASCAND [Concomitant]
     Dosage: UNK
  15. TROMBYL [Concomitant]
     Dosage: UNK

REACTIONS (4)
  - Confusional state [Unknown]
  - Diarrhoea [Unknown]
  - Fatigue [Unknown]
  - Urinary retention [Unknown]
